FAERS Safety Report 5128307-3 (Version None)
Quarter: 2006Q4

REPORT INFORMATION
  Report Type: 
  Country: None (occurrence: None)
  Receive Date: 20061011
  Receipt Date: 20060921
  Transmission Date: 20070319
  Serious: Yes (Hospitalization)
  Sender: FDA-Public Use
  Company Number: US200609004116

PATIENT
  Age: 57 Year
  Sex: Male
  Weight: 113.4 kg

DRUGS (1)
  1. ZYPREXA [Suspect]

REACTIONS (4)
  - CARDIAC DISORDER [None]
  - HEPATIC FAILURE [None]
  - HYPERGLYCAEMIA [None]
  - RENAL FAILURE [None]
